FAERS Safety Report 8214481-9 (Version None)
Quarter: 2012Q1

REPORT INFORMATION
  Report Type: 
  Country: None (occurrence: None)
  Receive Date: 20120316
  Receipt Date: 20120316
  Transmission Date: 20120608
  Serious: Yes (Other)
  Sender: FDA-Public Use
  Company Number: None

PATIENT
  Age: 37 Year
  Sex: Female
  Weight: 124.73 kg

DRUGS (2)
  1. IOVERSOL INJECTION 68% [Suspect]
     Indication: INFUSION SITE URTICARIA
     Dosage: 100ML
     Route: 042
     Dates: start: 20120315, end: 20120315
  2. IOVERSOL INJECTION 68% [Suspect]
     Indication: INFUSION SITE ERYTHEMA
     Dosage: 100ML
     Route: 042
     Dates: start: 20120315, end: 20120315

REACTIONS (3)
  - URTICARIA [None]
  - PRODUCT QUALITY ISSUE [None]
  - CONTRAST MEDIA REACTION [None]
